FAERS Safety Report 8266070-8 (Version None)
Quarter: 2012Q1

REPORT INFORMATION
  Report Type: 
  Country: None (occurrence: None)
  Receive Date: 20120327
  Receipt Date: 20091021
  Transmission Date: 20120608
  Serious: Yes (Other)
  Sender: FDA-Public Use
  Company Number: PHEH2009US12975

PATIENT
  Sex: Female

DRUGS (11)
  1. DIGOXIN [Concomitant]
  2. PROVENTIL [Concomitant]
  3. CARTIA XT [Concomitant]
  4. SPIRONOLACTONE [Concomitant]
  5. GLEEVEC [Suspect]
     Indication: CHRONIC MYELOID LEUKAEMIA
     Dosage: 800 MG, QD, ORAL
     Route: 048
     Dates: start: 20030101
  6. FUROSEMIDE (FUROSEMIDE) [Concomitant]
  7. HYDRALAZINE HCL [Concomitant]
  8. CYMBALTA [Concomitant]
  9. POTASSIUM CHLORIDE [Concomitant]
  10. SYMBICORT TURBUHALER'DRACO' (BUDESONIDE, FORMOTEROL FUMARAE) [Concomitant]
  11. CARDIZEM [Concomitant]

REACTIONS (4)
  - RENAL IMPAIRMENT [None]
  - VOMITING [None]
  - NAUSEA [None]
  - ANAEMIA [None]
